FAERS Safety Report 11904519 (Version 1)
Quarter: 2016Q1

REPORT INFORMATION
  Report Type: Spontaneous
  Country: US (occurrence: US)
  Receive Date: 20160108
  Receipt Date: 20160108
  Transmission Date: 20160526
  Serious: Yes (Death)
  Sender: FDA-Public Use
  Company Number: US-ROCHE-1535560

PATIENT
  Age: 67 Year
  Sex: Male
  Weight: 110.78 kg

DRUGS (2)
  1. ACTIVASE [Suspect]
     Active Substance: ALTEPLASE
     Indication: CEREBROVASCULAR ACCIDENT
     Dosage: LOADING DOSE
     Route: 042
     Dates: start: 20150110, end: 20150110
  2. ACTIVASE [Suspect]
     Active Substance: ALTEPLASE
     Dosage: X1 DOSE
     Route: 042
     Dates: start: 20150110, end: 20150110

REACTIONS (1)
  - Haemorrhage intracranial [Fatal]

NARRATIVE: CASE EVENT DATE: 20150110
